FAERS Safety Report 9995110 (Version 1)
Quarter: 2014Q1

REPORT INFORMATION
  Report Type: Spontaneous
  Country: US (occurrence: None)
  Receive Date: 20140225
  Receipt Date: 20140225
  Transmission Date: 20141002
  Serious: Yes (Hospitalization)
  Sender: FDA-Public Use
  Company Number: 2013-296

PATIENT
  Age: 78 Year
  Sex: Female

DRUGS (4)
  1. PRIALT (ZICONOTIDE) INTRATHECAL INFUSION [Suspect]
     Indication: PAIN
     Route: 037
  2. PRIALT (ZICONOTIDE) INTRATHECAL INFUSION [Suspect]
     Indication: POST LAMINECTOMY SYNDROME
     Route: 037
  3. HYDROMORPHONE HCL [Suspect]
     Indication: PAIN
     Route: 037
  4. HYDROMORPHONE HCL [Suspect]
     Indication: POST LAMINECTOMY SYNDROME
     Route: 037

REACTIONS (3)
  - Pain [None]
  - Treatment noncompliance [None]
  - Device issue [None]
